FAERS Safety Report 9796270 (Version 1)
Quarter: 2014Q1

REPORT INFORMATION
  Report Type: Spontaneous
  Country: RU (occurrence: RU)
  Receive Date: 20140103
  Receipt Date: 20140103
  Transmission Date: 20141002
  Serious: Yes (Death)
  Sender: FDA-Public Use
  Company Number: RU-ACTELION-A-CH2013-93025

PATIENT
  Age: 35 Year
  Sex: Female

DRUGS (7)
  1. TRACLEER [Suspect]
     Indication: PULMONARY ARTERIAL HYPERTENSION
     Dosage: 125 MG, BID
     Route: 048
     Dates: start: 20120208, end: 20131215
  2. TRACLEER [Suspect]
     Dosage: 62.5 MG, BID
     Route: 048
     Dates: start: 20110817
  3. SILDENAFIL [Concomitant]
     Dosage: UNK
  4. METIPRED [Concomitant]
  5. AZATHIOPRIN [Concomitant]
  6. LASIX [Concomitant]
  7. DOBUTAMINE [Concomitant]

REACTIONS (9)
  - Pulmonary arterial hypertension [Fatal]
  - Systemic sclerosis [Fatal]
  - Condition aggravated [Fatal]
  - Dyspnoea [Fatal]
  - Dizziness [Fatal]
  - Syncope [Fatal]
  - Palpitations [Fatal]
  - Pyrexia [Fatal]
  - Cardiopulmonary failure [Fatal]
